FAERS Safety Report 9989661 (Version 1)
Quarter: 2014Q1

REPORT INFORMATION
  Report Type: Report from Study
  Country: US (occurrence: US)
  Receive Date: 20140310
  Receipt Date: 20140310
  Transmission Date: 20141002
  Serious: No
  Sender: FDA-Public Use
  Company Number: US-ABBVIE-13P-163-1133688-00

PATIENT
  Sex: Female

DRUGS (11)
  1. HUMIRA [Suspect]
     Indication: CROHN^S DISEASE
     Dosage: LOADING DOSE OF 4 PENS
     Dates: start: 20130603, end: 20130603
  2. HUMIRA [Suspect]
     Dosage: LOADING DOSE OF 2 PENS ON DAY 15
  3. HUMIRA [Suspect]
     Dates: end: 20130902
  4. HUMIRA [Suspect]
     Dates: start: 20130902
  5. ACEBUTOLOL [Concomitant]
     Indication: HYPERTENSION
     Route: 048
  6. DIOVAN [Concomitant]
     Indication: HYPERTENSION
     Route: 048
  7. ALDACTONE [Concomitant]
     Indication: ALOPECIA
     Route: 048
  8. GEMFIBROZIL [Concomitant]
     Indication: BLOOD TRIGLYCERIDES INCREASED
     Route: 048
  9. PAXIL [Concomitant]
     Indication: DEPRESSION
     Route: 048
  10. NEXIUM [Concomitant]
     Indication: GASTROOESOPHAGEAL REFLUX DISEASE
  11. CRESTOR [Concomitant]
     Indication: HYPERCHOLESTEROLAEMIA

REACTIONS (3)
  - Movement disorder [Not Recovered/Not Resolved]
  - Drug ineffective [Not Recovered/Not Resolved]
  - Crohn^s disease [Not Recovered/Not Resolved]
